FAERS Safety Report 9555871 (Version 2)
Quarter: 2014Q1

REPORT INFORMATION
  Report Type: Spontaneous
  Country: FR (occurrence: None)
  Receive Date: 20130924
  Receipt Date: 20140204
  Transmission Date: 20141002
  Serious: Yes (Other)
  Sender: FDA-Public Use
  Company Number: AUR-APL-2013-07792

PATIENT
  Age: 71 Year
  Sex: Male

DRUGS (11)
  1. FINASTERIDE [Suspect]
     Indication: PROSTATIC ADENOMA
     Route: 048
  2. OXALIPLATIN [Suspect]
     Indication: CHOLANGIOCARCINOMA
     Route: 042
     Dates: start: 20130222, end: 20130628
  3. ZOLPIDEM TARTRATE [Suspect]
     Indication: INSOMNIA
     Route: 048
  4. OMEPRAZOLE [Suspect]
     Indication: PRODUCT USED FOR UNKNOWN INDICATION
     Route: 048
  5. VENTOLINE [Suspect]
     Indication: ASTHMA
     Route: 055
  6. SERETIDE [Suspect]
     Indication: ASTHMA
     Route: 055
  7. BROMAZEPAM [Suspect]
     Indication: ANXIETY
     Dosage: 0.5 TABLET
     Route: 048
  8. GEMZAR [Suspect]
     Indication: CHOLANGIOCARCINOMA
     Route: 042
     Dates: start: 20130221
  9. SPIRIVA [Suspect]
     Indication: ASTHMA
     Dosage: 2 UNIT
     Route: 055
  10. TAREG [Suspect]
     Indication: HYPERTENSION
     Route: 048
  11. FENOFIBRATE (FENOFIBRATE) (FENOFIBRATE) [Concomitant]

REACTIONS (7)
  - Cholangiocarcinoma [None]
  - Liver injury [None]
  - Feeling cold [None]
  - Neuropathy peripheral [None]
  - Skin reaction [None]
  - Pain in extremity [None]
  - Paraesthesia [None]
